FAERS Safety Report 24934899 (Version 1)
Quarter: 2025Q1

REPORT INFORMATION
  Report Type: Spontaneous
  Country: FR (occurrence: FR)
  Receive Date: 20250206
  Receipt Date: 20250206
  Transmission Date: 20250409
  Serious: Yes (Other)
  Sender: AUROBINDO
  Company Number: FR-AFSSAPS-TO2024002153

PATIENT
  Age: 32 Year
  Sex: Female
  Weight: 59 kg

DRUGS (8)
  1. PREGABALIN [Suspect]
     Active Substance: PREGABALIN
     Indication: Neuralgia
     Dosage: 300 MILLIGRAM, ONCE A DAY
     Route: 048
     Dates: start: 202407
  2. FOLIC ACID [Concomitant]
     Active Substance: FOLIC ACID
     Indication: Product used for unknown indication
     Route: 065
  3. CARBOPLATIN [Concomitant]
     Active Substance: CARBOPLATIN
     Indication: Product used for unknown indication
     Route: 065
  4. POLYETHYLENE GLYCOL 4000 [Concomitant]
     Active Substance: POLYETHYLENE GLYCOL 4000
     Indication: Product used for unknown indication
     Route: 065
  5. LAMICTAL [Concomitant]
     Active Substance: LAMOTRIGINE
     Indication: Product used for unknown indication
     Route: 065
  6. OXYCODONE [Concomitant]
     Active Substance: OXYCODONE
     Indication: Product used for unknown indication
     Route: 065
  7. PEMBROLIZUMAB [Suspect]
     Active Substance: PEMBROLIZUMAB
     Indication: Lung adenocarcinoma
     Route: 042
     Dates: start: 202404
  8. PEMETREXED [Concomitant]
     Active Substance: PEMETREXED
     Indication: Product used for unknown indication
     Route: 065

REACTIONS (3)
  - Blood thyroid stimulating hormone increased [Not Recovered/Not Resolved]
  - Epilepsy [Recovering/Resolving]
  - Condition aggravated [Recovering/Resolving]

NARRATIVE: CASE EVENT DATE: 20240924
